FAERS Safety Report 16276594 (Version 1)
Quarter: 2019Q2

REPORT INFORMATION
  Report Type: Spontaneous
  Country: US (occurrence: US)
  Receive Date: 20190506
  Receipt Date: 20190506
  Transmission Date: 20190711
  Serious: No
  Sender: FDA-Public Use
  Company Number: US-PFIZER INC-2019185965

PATIENT
  Age: 38 Year

DRUGS (3)
  1. BEVACIZUMAB PFIZER [Suspect]
     Active Substance: BEVACIZUMAB
     Dosage: UNK
  2. CAPECITABINE. [Suspect]
     Active Substance: CAPECITABINE
     Dosage: UNK
  3. IRINOTECAN HCL [Suspect]
     Active Substance: IRINOTECAN HYDROCHLORIDE
     Dosage: UNK

REACTIONS (4)
  - Lymphadenopathy [Unknown]
  - Vascular compression [Unknown]
  - Neoplasm progression [Unknown]
  - Neoplasm recurrence [Unknown]
